FAERS Safety Report 4290040-8 (Version None)
Quarter: 2004Q1

REPORT INFORMATION
  Report Type: 
  Country: None (occurrence: None)
  Receive Date: 20040205
  Receipt Date: 20040126
  Transmission Date: 20041129
  Serious: Yes (Death, Hospitalization)
  Sender: FDA-Public Use
  Company Number: NL-JNJFOC-20031204287

PATIENT
  Age: 69 Year
  Sex: Male

DRUGS (7)
  1. VASCOR [Suspect]
     Indication: TACHYARRHYTHMIA
     Dosage: 100 MG, ORAL
     Route: 048
     Dates: start: 20030729, end: 20030914
  2. BUFFERIN [Concomitant]
  3. FLECAINIDE ACETATE [Concomitant]
  4. METILDIGOXIN (METILDIGOXIN) [Concomitant]
  5. FLUVASTATIN SODIUM (FLUVASTATIN SODIUM) [Concomitant]
  6. CARVEDILOL [Concomitant]
  7. WARFARIN POTASSIUM (WARFARIN POTASSIUM) [Concomitant]

REACTIONS (11)
  - AGRANULOCYTOSIS [None]
  - BLOOD CREATINE PHOSPHOKINASE INCREASED [None]
  - BONE MARROW DEPRESSION [None]
  - GASTROINTESTINAL HAEMORRHAGE [None]
  - GENERAL PHYSICAL HEALTH DETERIORATION [None]
  - MULTI-ORGAN FAILURE [None]
  - MYOGLOBIN BLOOD INCREASED [None]
  - RENAL FAILURE [None]
  - RHABDOMYOLYSIS [None]
  - SEPSIS [None]
  - SHOCK [None]
